FAERS Safety Report 10090598 (Version 3)
Quarter: 2015Q4

REPORT INFORMATION
  Report Type: Spontaneous
  Country: US (occurrence: US)
  Receive Date: 20140421
  Receipt Date: 20151217
  Transmission Date: 20160304
  Serious: Yes (Hospitalization, Other)
  Sender: FDA-Public Use
  Company Number: US-BAYER-2014-056884

PATIENT
  Age: 34 Year
  Sex: Female
  Weight: 93.42 kg

DRUGS (14)
  1. YASMIN [Suspect]
     Active Substance: DROSPIRENONE\ETHINYL ESTRADIOL
  2. TAMIFLU [Concomitant]
     Active Substance: OSELTAMIVIR PHOSPHATE
  3. OMEPRAZOLE. [Concomitant]
     Active Substance: OMEPRAZOLE
     Dosage: 20 MG, UNK
     Route: 048
     Dates: start: 20091012, end: 20091114
  4. METHOCARBAMOL. [Concomitant]
     Active Substance: METHOCARBAMOL
     Dosage: 750 MG, UNK
     Route: 048
     Dates: start: 20090915, end: 20091121
  5. METRONIDAZOLE. [Concomitant]
     Active Substance: METRONIDAZOLE
     Dosage: 500 MG, UNK
     Route: 048
     Dates: start: 20090915, end: 20091008
  6. AZITHROMYCIN [Concomitant]
     Active Substance: AZITHROMYCIN ANHYDROUS
     Dosage: 250 MG, UNK
     Route: 048
     Dates: start: 20091127
  7. MELOXICAM. [Concomitant]
     Active Substance: MELOXICAM
  8. DOXYCYCLINE HYCLATE. [Concomitant]
     Active Substance: DOXYCYCLINE HYCLATE
     Dosage: 100 MG, UNK
     Route: 048
     Dates: start: 20090915
  9. CELEXA [Concomitant]
     Active Substance: CITALOPRAM HYDROBROMIDE
  10. OCELLA [Suspect]
     Active Substance: DROSPIRENONE\ETHINYL ESTRADIOL
  11. AMITRIPTYLINE HCL [Concomitant]
     Active Substance: AMITRIPTYLINE
     Route: 048
  12. CITALOPRAM [Concomitant]
     Active Substance: CITALOPRAM HYDROBROMIDE
     Dosage: 20 MG, UNK
     Route: 048
     Dates: start: 20091002
  13. MOTRIN [Concomitant]
     Active Substance: IBUPROFEN
  14. LIDOCAINE. [Concomitant]
     Active Substance: LIDOCAINE

REACTIONS (8)
  - Cerebral infarction [None]
  - Cerebral haemorrhage [None]
  - Cerebrovascular accident [None]
  - Deep vein thrombosis [None]
  - Cerebral artery embolism [None]
  - Embolism arterial [None]
  - Haemorrhagic transformation stroke [None]
  - Cerebral infarction [None]

NARRATIVE: CASE EVENT DATE: 20091205
